FAERS Safety Report 4570244-7 (Version None)
Quarter: 2005Q1

REPORT INFORMATION
  Report Type: 
  Country: None (occurrence: None)
  Receive Date: 20050127
  Receipt Date: 20050127
  Transmission Date: 20050727
  Serious: Yes (Hospitalization)
  Sender: FDA-Public Use
  Company Number: None

PATIENT
  Sex: Male
  Weight: 75.7507 kg

DRUGS (7)
  1. IRESSA [Suspect]
     Indication: PANCREATIC CARCINOMA
     Dosage: 250 MG   DAILY   ORAL
     Route: 048
     Dates: start: 20031024, end: 20040530
  2. COZAAR [Concomitant]
  3. COUMADIN [Concomitant]
  4. TAMBOCOR [Concomitant]
  5. NEXIUM [Concomitant]
  6. AMBIEN [Concomitant]
  7. PANCREATIC ENZYMES [Concomitant]

REACTIONS (6)
  - ANAEMIA [None]
  - COLITIS [None]
  - DIZZINESS [None]
  - HAEMORRHAGE [None]
  - HYPERHIDROSIS [None]
  - NAUSEA [None]
